FAERS Safety Report 4874399-6 (Version None)
Quarter: 2005Q4

REPORT INFORMATION
  Report Type: 
  Country: None (occurrence: None)
  Receive Date: 20051201
  Receipt Date: 20050814
  Transmission Date: 20060501
  Serious: No
  Sender: FDA-Public Use
  Company Number: 2005PV001054

PATIENT
  Age: 77 Year
  Sex: Male
  Weight: 120.2032 kg

DRUGS (12)
  1. BYETTA [Suspect]
     Indication: DIABETES MELLITUS NON-INSULIN-DEPENDENT
     Dosage: 5 MCG;BID;SC
     Route: 058
     Dates: start: 20050802
  2. METOLOZONE [Suspect]
     Indication: POLYURIA
     Dates: start: 20050802
  3. HUMALOG [Concomitant]
  4. LANTUS [Concomitant]
  5. AVANDIA [Concomitant]
  6. ISOSORBIDE [Concomitant]
  7. COREG [Concomitant]
  8. ALLOPURINOL [Concomitant]
  9. PROBEN [Concomitant]
  10. RENAGEL [Concomitant]
  11. ALBUTEROL [Concomitant]
  12. ADVAIR DISKUS 100/50 [Concomitant]

REACTIONS (5)
  - ANOREXIA [None]
  - NAUSEA [None]
  - RENAL IMPAIRMENT [None]
  - TREATMENT NONCOMPLIANCE [None]
  - WEIGHT DECREASED [None]
